FAERS Safety Report 15420735 (Version 1)
Quarter: 2018Q3

REPORT INFORMATION
  Report Type: Spontaneous
  Country: US (occurrence: US)
  Receive Date: 20180924
  Receipt Date: 20180924
  Transmission Date: 20181010
  Serious: No
  Sender: FDA-Public Use
  Company Number: US-ALLERGAN-1803018US

PATIENT
  Age: 69 Year
  Sex: Male

DRUGS (2)
  1. LINZESS [Suspect]
     Active Substance: LINACLOTIDE
     Indication: CONSTIPATION
     Dosage: 72 ?G, QD (1/2 HOUR BEFORE BREAKFAST)
     Route: 048
     Dates: start: 20180106
  2. LIBRAX [Concomitant]
     Active Substance: CHLORDIAZEPOXIDE HYDROCHLORIDE\CLIDINIUM BROMIDE
     Indication: CONSTIPATION
     Dosage: UNK

REACTIONS (3)
  - Off label use [Unknown]
  - Defaecation urgency [Not Recovered/Not Resolved]
  - Diarrhoea [Recovered/Resolved]

NARRATIVE: CASE EVENT DATE: 201801
